FAERS Safety Report 20311727 (Version 1)
Quarter: 2022Q1

REPORT INFORMATION
  Report Type: Spontaneous
  Country: US (occurrence: US)
  Receive Date: 20220108
  Receipt Date: 20220108
  Transmission Date: 20220424
  Serious: Yes (Other)
  Sender: FDA-Public Use
  Company Number: US-TARO-2022TAR00004

PATIENT
  Age: 54 Year
  Sex: Male

DRUGS (5)
  1. AMIODARONE [Interacting]
     Active Substance: AMIODARONE
     Indication: Atrial flutter
     Dosage: UNK
     Route: 048
  2. CLOPIDOGREL [Interacting]
     Active Substance: CLOPIDOGREL BISULFATE
     Indication: Atrial flutter
     Dosage: 75 MILLIGRAM, QD
     Route: 065
  3. CLOPIDOGREL [Interacting]
     Active Substance: CLOPIDOGREL BISULFATE
     Dosage: UNK
     Route: 065
  4. APIXABAN [Interacting]
     Active Substance: APIXABAN
     Indication: Atrial flutter
     Dosage: 5 MILLIGRAM, BID
     Route: 065
  5. ASPIRIN [Interacting]
     Active Substance: ASPIRIN
     Indication: Atrial flutter
     Dosage: 81 MILLIGRAM, QD
     Route: 065

REACTIONS (2)
  - Pericardial haemorrhage [Unknown]
  - Drug interaction [Unknown]
